FAERS Safety Report 12299182 (Version 1)
Quarter: 2016Q2

REPORT INFORMATION
  Report Type: Spontaneous
  Country: US (occurrence: None)
  Receive Date: 20160422
  Receipt Date: 20160422
  Transmission Date: 20160815
  Serious: Yes (Hospitalization, Disabling, Other)
  Sender: FDA-Public Use
  Company Number: None

PATIENT
  Age: 24 Year
  Sex: Female
  Weight: 48 kg

DRUGS (2)
  1. NUVARING [Suspect]
     Active Substance: ETHINYL ESTRADIOL\ETONOGESTREL
     Indication: CONTRACEPTION
     Dosage: AS NEEDED VAGINAL
     Route: 067
  2. CICATRIDINE [Concomitant]

REACTIONS (4)
  - Malaise [None]
  - Metrorrhagia [None]
  - Fatigue [None]
  - Syncope [None]

NARRATIVE: CASE EVENT DATE: 20150829
